FAERS Safety Report 8456418-3 (Version None)
Quarter: 2012Q2

REPORT INFORMATION
  Report Type: 
  Country: None (occurrence: None)
  Receive Date: 20120621
  Receipt Date: 20120606
  Transmission Date: 20120825
  Serious: Yes (Hospitalization, Congenital Anomaly)
  Sender: FDA-Public Use
  Company Number: DE-WATSON-2012-10062

PATIENT
  Sex: Female
  Weight: 2.93 kg

DRUGS (3)
  1. FOLIC ACID [Concomitant]
     Indication: PROPHYLAXIS OF NEURAL TUBE DEFECT
     Dosage: 0.4 [MG/D ]
     Route: 064
  2. METFORMIN HCL [Suspect]
     Indication: POLYCYSTIC OVARIES
     Dosage: ^1500 [MG/D ]^
     Route: 064
  3. LEVOTHYROXINE SODIUM [Concomitant]
     Indication: HYPOTHYROIDISM
     Dosage: 50 [+#956;G/D ]
     Route: 064

REACTIONS (3)
  - PULMONARY HYPOPLASIA [None]
  - CONGENITAL DIAPHRAGMATIC HERNIA [None]
  - PATENT DUCTUS ARTERIOSUS [None]
